FAERS Safety Report 25797191 (Version 1)
Quarter: 2025Q3

REPORT INFORMATION
  Report Type: Report from Study
  Country: US (occurrence: US)
  Receive Date: 20250912
  Receipt Date: 20250912
  Transmission Date: 20251020
  Serious: Yes (Hospitalization, Other)
  Sender: BAYER HEALTHCARE PHARMACEUTICALS INC.
  Company Number: US-BAYER-2025A117379

PATIENT
  Age: 82 Year
  Sex: Female

DRUGS (2)
  1. ADEMPAS [Suspect]
     Active Substance: RIOCIGUAT
     Indication: Pulmonary arterial hypertension
  2. ADEMPAS [Suspect]
     Active Substance: RIOCIGUAT
     Indication: Pulmonary arterial hypertension
     Dosage: 2.5 MG, TID
     Route: 048
     Dates: start: 202001

REACTIONS (6)
  - Abdominal pain upper [None]
  - Blood pressure decreased [Recovered/Resolved]
  - Myocardial necrosis marker increased [None]
  - Hypoglycaemia [None]
  - Dizziness [None]
  - Joint swelling [None]

NARRATIVE: CASE EVENT DATE: 20250816
